FAERS Safety Report 21423377 (Version 1)
Quarter: 2022Q4

REPORT INFORMATION
  Report Type: Spontaneous
  Country: US (occurrence: None)
  Receive Date: 20221006
  Receipt Date: 20221006
  Transmission Date: 20230112
  Serious: No
  Sender: FDA-Public Use
  Company Number: None

PATIENT
  Age: 56 Year
  Sex: Female
  Weight: 44.23 kg

DRUGS (10)
  1. CAPECITABINE [Suspect]
     Active Substance: CAPECITABINE
     Indication: Breast cancer female
     Dosage: FREQUENCY : TWICE A DAY;?
     Route: 048
  2. CAPECITABINE [Suspect]
     Active Substance: CAPECITABINE
     Indication: Breast cancer female
     Dosage: FREQUENCY : TWICE A DAY;?
     Route: 048
  3. DEXAMETHASONE [Concomitant]
  4. GABAPENTIN [Concomitant]
  5. KEPPRA [Concomitant]
  6. MIRALAX [Concomitant]
  7. MORPHINE [Concomitant]
  8. ONDANSETRON [Concomitant]
  9. OXYCODONE [Concomitant]
  10. POTASSIUM CHLORIDE [Concomitant]

REACTIONS (1)
  - Hospice care [None]
